FAERS Safety Report 6588158-X (Version None)
Quarter: 2010Q1

REPORT INFORMATION
  Report Type: 
  Country: None (occurrence: None)
  Receive Date: 20100218
  Receipt Date: 20090615
  Transmission Date: 20100710
  Serious: No
  Sender: FDA-Public Use
  Company Number: US-ASTRAZENECA-2009UW15354

PATIENT
  Sex: Female

DRUGS (1)
  1. FELODIPINE [Suspect]
     Route: 048

REACTIONS (1)
  - SUFFOCATION FEELING [None]
